FAERS Safety Report 17958209 (Version 1)
Quarter: 2020Q2

REPORT INFORMATION
  Report Type: Spontaneous
  Country: US (occurrence: US)
  Receive Date: 20200629
  Receipt Date: 20200629
  Transmission Date: 20200714
  Serious: No
  Sender: FDA-Public Use
  Company Number: US-PFIZER INC-2020246778

PATIENT
  Age: 53 Year
  Sex: Female

DRUGS (1)
  1. GENOTROPIN [Suspect]
     Active Substance: SOMATROPIN
     Indication: POSTPARTUM HYPOPITUITARISM
     Dosage: 0.6 MG, DAILY

REACTIONS (5)
  - Off label use [Unknown]
  - Temperature intolerance [Unknown]
  - Product use in unapproved indication [Unknown]
  - Lethargy [Unknown]
  - Hyperhidrosis [Unknown]
